FAERS Safety Report 9284199 (Version 2)
Quarter: 2013Q2

REPORT INFORMATION
  Report Type: Spontaneous
  Country: IT (occurrence: None)
  Receive Date: 20130502
  Receipt Date: 20130517
  Transmission Date: 20140414
  Serious: Yes (Other)
  Sender: FDA-Public Use
  Company Number: INT_00253_2013

PATIENT
  Age: 40 Year
  Sex: Female

DRUGS (3)
  1. CEFTRIAXON [Suspect]
     Indication: BRONCHITIS
     Route: 030
     Dates: start: 20120917, end: 20120917
  2. LEVOFLOXACIN [Suspect]
     Indication: BRONCHITIS
     Dosage: (DF ORAL)?
     Route: 048
     Dates: start: 20120917, end: 20120917
  3. EUTIROX [Concomitant]

REACTIONS (3)
  - Erythema [None]
  - Urticaria [None]
  - Pruritus generalised [None]
